FAERS Safety Report 6889911-5 (Version None)
Quarter: 2010Q3

REPORT INFORMATION
  Report Type: 
  Country: None (occurrence: None)
  Receive Date: 20100730
  Receipt Date: 20080603
  Transmission Date: 20110219
  Serious: No
  Sender: FDA-Public Use
  Company Number: US-PFIZER INC-2008047082

PATIENT
  Sex: Male
  Weight: 68.181 kg

DRUGS (6)
  1. LIPITOR [Suspect]
     Indication: BLOOD CHOLESTEROL INCREASED
     Route: 048
     Dates: start: 20080301
  2. ENALAPRIL [Concomitant]
  3. ACETYLSALICYLIC ACID SRT [Concomitant]
  4. CLARINEX [Concomitant]
  5. PROTONIX [Concomitant]
  6. NASONEX [Concomitant]

REACTIONS (1)
  - RASH [None]
